FAERS Safety Report 8757991 (Version 2)
Quarter: 2013Q2

REPORT INFORMATION
  Report Type: Spontaneous
  Country: BR (occurrence: BR)
  Receive Date: 20120828
  Receipt Date: 20130605
  Transmission Date: 20140414
  Serious: Yes (Other)
  Sender: FDA-Public Use
  Company Number: BR-AMGEN-BRASP2012040073

PATIENT
  Age: 54 Year
  Sex: Female
  Weight: 68 kg

DRUGS (11)
  1. ENBREL [Suspect]
     Indication: PSORIASIS
     Dosage: 50 MG, WEEKLY
     Route: 058
     Dates: start: 201204
  2. BROMOPRIDE [Suspect]
     Dosage: UNK
  3. PLASIL [Suspect]
     Dosage: UNK
  4. ENALAPRIL [Concomitant]
     Indication: HYPERTENSION
     Dosage: 20 MG, 1X/DAY
  5. ENALAPRIL [Concomitant]
     Dosage: 20 MG, 1X/DAY
  6. HIGROTON [Concomitant]
     Dosage: 12.5 MG, 1X/DAY
  7. ISONIAZID [Concomitant]
     Indication: TUBERCULOSIS
     Dosage: 300 MG, 1X/DAY
  8. ISONIAZID [Concomitant]
     Indication: PROPHYLAXIS
  9. CRESTOR [Concomitant]
     Indication: BLOOD TRIGLYCERIDES
     Dosage: STRENGTH 25 (UNITS UNSPECIFIED), UNK
  10. ASPIRINA PREVENT [Concomitant]
     Indication: BLOOD TRIGLYCERIDES
     Dosage: STRENGTH 100MG, UNK
  11. ASPIRINA PREVENT [Concomitant]
     Indication: ANTICOAGULANT THERAPY
     Dosage: UNK

REACTIONS (17)
  - Eyelid oedema [Recovered/Resolved]
  - Blister [Recovered/Resolved]
  - Face oedema [Recovered/Resolved]
  - Abdominal pain [Recovered/Resolved]
  - Nausea [Recovered/Resolved]
  - Dysuria [Recovered/Resolved]
  - Dyspnoea [Recovering/Resolving]
  - Nasal congestion [Recovering/Resolving]
  - Pain [Not Recovered/Not Resolved]
  - Dysphonia [Not Recovered/Not Resolved]
  - Cough [Unknown]
  - Diarrhoea [Recovering/Resolving]
  - Stress [Unknown]
  - Viral infection [Recovered/Resolved]
  - Sinusitis [Recovered/Resolved]
  - Psoriasis [Unknown]
  - Drug ineffective [Unknown]
